FAERS Safety Report 10179336 (Version 3)
Quarter: 2014Q2

REPORT INFORMATION
  Report Type: Report from Study
  Country: US (occurrence: US)
  Receive Date: 20140519
  Receipt Date: 20140520
  Transmission Date: 20141212
  Serious: Yes (Hospitalization)
  Sender: FDA-Public Use
  Company Number: US-PFIZER INC-2014122965

PATIENT
  Age: 66 Year
  Sex: Female
  Weight: 74.51 kg

DRUGS (8)
  1. DACOMITINIB [Suspect]
     Indication: GLIOBLASTOMA
     Dosage: 45 MG, 1X/DAY
     Route: 048
     Dates: start: 20140423, end: 20140501
  2. TOLTERODINE TARTRATE [Suspect]
  3. AMLODIPINE [Concomitant]
  4. ATORVASTATIN [Concomitant]
     Dosage: UNK
  5. DEXAMETHASONE [Concomitant]
     Dosage: UNK
  6. FOLIC ACID [Concomitant]
     Dosage: UNK
  7. LEVOTHYROXIN [Concomitant]
     Dosage: UNK
  8. LACOSAMIDE [Concomitant]
     Dosage: UNK

REACTIONS (8)
  - Urinary retention [Recovered/Resolved]
  - Muscular weakness [Not Recovered/Not Resolved]
  - Urinary tract infection [Recovered/Resolved]
  - Memory impairment [Unknown]
  - Hydrocephalus [Not Recovered/Not Resolved]
  - Asthenia [Unknown]
  - Asthenia [Not Recovered/Not Resolved]
  - Dysphagia [Unknown]
